FAERS Safety Report 5798592-3 (Version None)
Quarter: 2008Q3

REPORT INFORMATION
  Report Type: 
  Country: None (occurrence: None)
  Receive Date: 20080702
  Receipt Date: 20080521
  Transmission Date: 20090109
  Serious: Yes (Hospitalization)
  Sender: FDA-Public Use
  Company Number: KR-JNJFOC-20080305834

PATIENT
  Age: 65 Year
  Sex: Female
  Weight: 45 kg

DRUGS (12)
  1. INFLIXIMAB, RECOMBINANT [Suspect]
     Route: 042
  2. INFLIXIMAB, RECOMBINANT [Suspect]
     Route: 042
  3. INFLIXIMAB, RECOMBINANT [Suspect]
     Indication: RHEUMATOID ARTHRITIS
     Route: 042
  4. METHOTREXATE [Concomitant]
     Indication: RHEUMATOID ARTHRITIS
  5. RISEDRONATE SODIUM [Concomitant]
     Indication: OSTEOPOROSIS
  6. ASCORBIC ACID [Concomitant]
  7. FOLIC ACID [Concomitant]
     Indication: PROPHYLAXIS
  8. CLOPIDOGREL [Concomitant]
  9. NIMODIPINE [Concomitant]
  10. ZOLPIDEM [Concomitant]
     Indication: SLEEP DISORDER
  11. MELOXICAM [Concomitant]
     Indication: SLEEP DISORDER
  12. ESCITALOPRAM OXALATE [Concomitant]
     Indication: DEPRESSION

REACTIONS (3)
  - CHOLECYSTITIS ACUTE [None]
  - COLITIS ULCERATIVE [None]
  - GASTRIC ULCER [None]
